FAERS Safety Report 11596365 (Version 4)
Quarter: 2018Q3

REPORT INFORMATION
  Report Type: Spontaneous
  Country: US (occurrence: US)
  Receive Date: 20151006
  Receipt Date: 20180816
  Transmission Date: 20181010
  Serious: Yes (Hospitalization)
  Sender: FDA-Public Use
  Company Number: US-SA-2015SA153149

PATIENT
  Age: 51 Year
  Sex: Male

DRUGS (2)
  1. CEREZYME [Suspect]
     Active Substance: IMIGLUCERASE
     Dosage: 7200 DF,QOW
     Route: 041
     Dates: start: 20130204, end: 201509
  2. CEREZYME [Suspect]
     Active Substance: IMIGLUCERASE
     Dosage: 7200 DF,QOW
     Route: 041
     Dates: start: 20130228

REACTIONS (3)
  - Gallbladder disorder [Unknown]
  - Back pain [Unknown]
  - Drug dose omission [Unknown]

NARRATIVE: CASE EVENT DATE: 20170119
